FAERS Safety Report 19294487 (Version 1)
Quarter: 2021Q2

REPORT INFORMATION
  Report Type: Spontaneous
  Country: US (occurrence: US)
  Receive Date: 20210524
  Receipt Date: 20210524
  Transmission Date: 20210717
  Serious: Yes (Hospitalization, Other)
  Sender: FDA-Public Use
  Company Number: US-AUROBINDO-AUR-APL-2021-020511

PATIENT
  Age: 8 Year
  Sex: Male

DRUGS (5)
  1. MYCOPHENOLATE MOFETIL. [Concomitant]
     Active Substance: MYCOPHENOLATE MOFETIL
     Indication: PROPHYLAXIS AGAINST GRAFT VERSUS HOST DISEASE
     Dosage: UNK
     Route: 065
  2. CICLOSPORIN [Concomitant]
     Active Substance: CYCLOSPORINE
     Indication: PROPHYLAXIS AGAINST GRAFT VERSUS HOST DISEASE
     Dosage: UNK
     Route: 065
  3. BUSULFAN. [Suspect]
     Active Substance: BUSULFAN
     Indication: ALLOGENIC STEM CELL TRANSPLANTATION
     Dosage: AT EVERY 6 HOURS FOR A TOTAL OF 16 DOSES AT 0.8 MG/KG FROM DAY 9 TO DAY 6 BEFORE THE TRANSPLANTATION
     Route: 042
  4. FLUDARABINE [Suspect]
     Active Substance: FLUDARABINE PHOSPHATE
     Indication: ALLOGENIC STEM CELL TRANSPLANTATION
     Dosage: 30 MG/M 2 FROM DAY 5 TO DAY 2 PRIOR TO THE TRANSPLANTATION
     Route: 065
  5. MELPHALAN. [Suspect]
     Active Substance: MELPHALAN
     Indication: ALLOGENIC STEM CELL TRANSPLANTATION
     Dosage: 100 MG/M 2 MELPHALAN ON DAY 3 AND DAY 2 PRIOR TO THE TRANSPLANTATION
     Route: 065

REACTIONS (6)
  - Stomatitis [Recovered/Resolved]
  - Respiratory distress [Recovered/Resolved]
  - Gastrointestinal disorder [Recovered/Resolved]
  - Acute graft versus host disease [Recovered/Resolved]
  - Mucosal inflammation [Recovered/Resolved]
  - Bacteraemia [Recovered/Resolved]
